FAERS Safety Report 25189344 (Version 2)
Quarter: 2025Q2

REPORT INFORMATION
  Report Type: Report from Study
  Country: US (occurrence: US)
  Receive Date: 20250411
  Receipt Date: 20250623
  Transmission Date: 20250716
  Serious: Yes (Other)
  Sender: JOHNSON AND JOHNSON
  Company Number: US-JNJFOC-20250408823

PATIENT
  Age: 64 Year
  Sex: Male
  Weight: 117.93 kg

DRUGS (1)
  1. APALUTAMIDE [Suspect]
     Active Substance: APALUTAMIDE
     Indication: Prostate cancer
     Route: 048
     Dates: start: 20250320, end: 20250327

REACTIONS (2)
  - Restless legs syndrome [Recovered/Resolved]
  - Insomnia [Recovered/Resolved]
